FAERS Safety Report 6710448-8 (Version None)
Quarter: 2010Q2

REPORT INFORMATION
  Report Type: 
  Country: None (occurrence: None)
  Receive Date: 20100504
  Receipt Date: 20100429
  Transmission Date: 20101027
  Serious: Yes (Death)
  Sender: FDA-Public Use
  Company Number: PHHO2010GB06505

PATIENT
  Sex: Female

DRUGS (2)
  1. NILOTINIB [Suspect]
     Indication: GASTROINTESTINAL STROMAL TUMOUR
     Dosage: 400 MG, UNK
     Route: 048
     Dates: start: 20091022
  2. SEVREDOL [Concomitant]
     Dosage: 10 MG QDS

REACTIONS (1)
  - DEATH [None]
